FAERS Safety Report 7339986-4 (Version None)
Quarter: 2011Q1

REPORT INFORMATION
  Report Type: 
  Country: None (occurrence: None)
  Receive Date: 20110309
  Receipt Date: 20110303
  Transmission Date: 20110831
  Serious: Yes (Other)
  Sender: FDA-Public Use
  Company Number: US-PFIZER INC-2011047367

PATIENT
  Sex: Male
  Weight: 38.549 kg

DRUGS (2)
  1. ZOLOFT [Suspect]
     Indication: ANXIETY
     Dosage: 12.5 MG, 1X/DAY
     Route: 048
     Dates: start: 20100101
  2. ZOLOFT [Suspect]
     Dosage: 25 MG, 1X/DAY
     Route: 048

REACTIONS (2)
  - GAIT DISTURBANCE [None]
  - MYALGIA [None]
